FAERS Safety Report 8001571-9 (Version None)
Quarter: 2011Q4

REPORT INFORMATION
  Report Type: 
  Country: None (occurrence: None)
  Receive Date: 20111222
  Receipt Date: 20111220
  Transmission Date: 20120403
  Serious: Yes (Life-Threatening, Hospitalization)
  Sender: FDA-Public Use
  Company Number: JP-PFIZER INC-2011249200

PATIENT
  Age: 26 Year
  Sex: Male

DRUGS (14)
  1. ZOLOFT [Suspect]
     Dosage: 50 MG, 1X/DAY
     Route: 048
     Dates: start: 20090109, end: 20090115
  2. MIRADOL [Suspect]
     Dosage: 50 MG, 1X/DAY
     Route: 048
     Dates: start: 20081016, end: 20081211
  3. MIRADOL [Suspect]
     Dosage: 50 MG, 2X/DAY
     Route: 048
     Dates: start: 20081212, end: 20081218
  4. DIAZEPAM [Suspect]
     Indication: DEPRESSION
     Dosage: 2 MG, 2X/DAY
     Route: 048
     Dates: start: 20081003, end: 20081015
  5. MIRADOL [Suspect]
     Dosage: 50 MG, 3X/DAY
     Route: 048
     Dates: start: 20081219, end: 20090827
  6. ZOLOFT [Suspect]
     Indication: DEPRESSION
     Dosage: 25 MG, 1X/DAY
     Route: 048
     Dates: start: 20081016, end: 20081120
  7. MIRADOL [Suspect]
     Dosage: 50 MG, 2X/DAY
     Route: 048
     Dates: start: 20090828
  8. DIAZEPAM [Suspect]
     Dosage: 2 MG, 1X/DAY
     Route: 048
     Dates: start: 20081016, end: 20090219
  9. ZOLOFT [Suspect]
     Dosage: 25 MG, 1X/DAY
     Route: 048
     Dates: start: 20090116, end: 20090123
  10. ZOLOFT [Suspect]
     Dosage: 50 MG, 1X/DAY
     Route: 048
     Dates: start: 20081121, end: 20081211
  11. ZOLOFT [Suspect]
     Dosage: 25 MG, 1X/DAY
     Route: 048
     Dates: start: 20081212, end: 20090108
  12. ZOLOFT [Suspect]
     Dosage: 25 MG, 1X/DAY
     Route: 048
     Dates: start: 20110406
  13. MIRADOL [Suspect]
     Indication: DEPRESSION
     Dosage: 50 MG, 2X/DAY
     Route: 048
     Dates: start: 20081003, end: 20081015
  14. DIAZEPAM [Suspect]
     Dosage: 2 MG, 2X/DAY
     Route: 048
     Dates: start: 20110324

REACTIONS (3)
  - HYPERAMYLASAEMIA [None]
  - ACUTE PRERENAL FAILURE [None]
  - HEPATITIS ACUTE [None]
